FAERS Safety Report 17566983 (Version 1)
Quarter: 2020Q1

REPORT INFORMATION
  Report Type: Spontaneous
  Country: JP (occurrence: JP)
  Receive Date: 20200320
  Receipt Date: 20200320
  Transmission Date: 20200409
  Serious: Yes (Hospitalization, Other)
  Sender: FDA-Public Use
  Company Number: JP-PFIZER INC-2020049092

PATIENT
  Age: 75 Year
  Sex: Female

DRUGS (1)
  1. INLYTA [Suspect]
     Active Substance: AXITINIB
     Indication: RENAL CANCER
     Dosage: 5 MG, 2X/DAY, AFTER BREAKFAST AND DINNER
     Route: 048

REACTIONS (10)
  - Lymphocyte percentage increased [Unknown]
  - White blood cell count increased [Unknown]
  - Malaise [Unknown]
  - Neutrophil percentage increased [Unknown]
  - Blood potassium decreased [Unknown]
  - Blood calcium increased [Unknown]
  - Dizziness [Recovered/Resolved]
  - Blood albumin decreased [Unknown]
  - Blood glucose increased [Unknown]
  - Blood cholesterol increased [Unknown]

NARRATIVE: CASE EVENT DATE: 20200201
